FAERS Safety Report 5930064-5 (Version None)
Quarter: 2008Q4

REPORT INFORMATION
  Report Type: 
  Country: None (occurrence: None)
  Receive Date: 20081024
  Receipt Date: 20081017
  Transmission Date: 20090506
  Serious: No
  Sender: FDA-Public Use
  Company Number: US-B.I. PHARMACEUTICALS,INC./RIDGEFIELD-2008-BP-14887BP

PATIENT
  Age: 80 Year
  Sex: Female
  Weight: 64 kg

DRUGS (6)
  1. MICARDIS [Suspect]
     Indication: HYPERTENSION
     Dates: start: 20080731, end: 20080910
  2. SECTRAL [Concomitant]
     Dosage: 600MG
  3. PRILOSEC [Concomitant]
  4. CRESTOR [Concomitant]
     Dosage: 5MG
  5. CARDIZEM CD [Concomitant]
     Dosage: 120MG
  6. TRAMADOL HCL [Concomitant]
     Route: 048

REACTIONS (4)
  - ABDOMINAL PAIN [None]
  - DIARRHOEA [None]
  - DIZZINESS [None]
  - DYSPEPSIA [None]
